FAERS Safety Report 16748881 (Version 1)
Quarter: 2019Q3

REPORT INFORMATION
  Report Type: Spontaneous
  Country: US (occurrence: US)
  Receive Date: 20190828
  Receipt Date: 20190828
  Transmission Date: 20191005
  Serious: Yes (Other)
  Sender: FDA-Public Use
  Company Number: US-IPSEN BIOPHARMACEUTICALS, INC.-2019-14893

PATIENT
  Age: 57 Year
  Sex: Male

DRUGS (5)
  1. LEVOTHYROXINE. [Concomitant]
     Active Substance: LEVOTHYROXINE
  2. DOXYCYCLINE. [Concomitant]
     Active Substance: DOXYCYCLINE
  3. TESTOSTERONE. [Concomitant]
     Active Substance: TESTOSTERONE
  4. CEFDINIR. [Concomitant]
     Active Substance: CEFDINIR
  5. SOMATULINE DEPOT [Suspect]
     Active Substance: LANREOTIDE ACETATE
     Indication: ACROMEGALY
     Route: 058
     Dates: start: 20160726

REACTIONS (2)
  - Pneumonia [Unknown]
  - Arthropod bite [Unknown]

NARRATIVE: CASE EVENT DATE: 201908
